FAERS Safety Report 13770138 (Version 1)
Quarter: 2017Q3

REPORT INFORMATION
  Report Type: Spontaneous
  Country: US (occurrence: US)
  Receive Date: 20170719
  Receipt Date: 20170719
  Transmission Date: 20171127
  Serious: No
  Sender: FDA-Public Use
  Company Number: None

PATIENT
  Age: 45 Year
  Sex: Female

DRUGS (1)
  1. REBIF REBIDOSE [Suspect]
     Active Substance: INTERFERON BETA-1A

REACTIONS (3)
  - Muscle spasticity [None]
  - Fatigue [None]
  - Gastrointestinal disorder [None]

NARRATIVE: CASE EVENT DATE: 20170719
